FAERS Safety Report 13615344 (Version 1)
Quarter: 2017Q2

REPORT INFORMATION
  Report Type: Spontaneous
  Country: US (occurrence: US)
  Receive Date: 20170605
  Receipt Date: 20170605
  Transmission Date: 20170830
  Serious: No
  Sender: FDA-Public Use
  Company Number: None

PATIENT
  Age: 66 Year
  Sex: Male
  Weight: 69 kg

DRUGS (1)
  1. PEMBROLIZUMAB. [Suspect]
     Active Substance: PEMBROLIZUMAB
     Dosage: 2MG/KG Q 3 WEEKS X 15 MONTHS
     Dates: start: 201502

REACTIONS (8)
  - Back pain [None]
  - Dysuria [None]
  - Asthenia [None]
  - Dizziness [None]
  - Adrenal insufficiency [None]
  - Hypophagia [None]
  - Decreased appetite [None]
  - Nausea [None]

NARRATIVE: CASE EVENT DATE: 20160908
